FAERS Safety Report 4774707-0 (Version None)
Quarter: 2005Q3

REPORT INFORMATION
  Report Type: 
  Country: None (occurrence: None)
  Receive Date: 20050921
  Receipt Date: 20050613
  Transmission Date: 20060218
  Serious: Yes (Life-Threatening, Hospitalization, Disabling, Other)
  Sender: FDA-Public Use
  Company Number: US-GLAXOSMITHKLINE-A0562405A

PATIENT
  Age: 67 Year
  Sex: Male

DRUGS (5)
  1. WELLBUTRIN [Suspect]
     Route: 048
     Dates: end: 20030615
  2. XANAX [Suspect]
     Dosage: .5MG TWICE PER DAY
     Route: 048
  3. ALCOHOL [Suspect]
  4. BLOOD PRESSURE MEDICATION [Concomitant]
  5. CARDIAC MEDICATION [Concomitant]

REACTIONS (8)
  - ADVERSE EVENT [None]
  - ANOXIC ENCEPHALOPATHY [None]
  - CARDIAC ARREST [None]
  - GENERAL PHYSICAL HEALTH DETERIORATION [None]
  - GRAND MAL CONVULSION [None]
  - HYPOTENSION [None]
  - MYOCARDIAL INFARCTION [None]
  - THERAPY NON-RESPONDER [None]
